FAERS Safety Report 7481573-1 (Version None)
Quarter: 2011Q2

REPORT INFORMATION
  Report Type: 
  Country: None (occurrence: None)
  Receive Date: 20110516
  Receipt Date: 20110512
  Transmission Date: 20111010
  Serious: Yes (Other)
  Sender: FDA-Public Use
  Company Number: A0926363A

PATIENT
  Age: 74 Year
  Sex: Female
  Weight: 71.4 kg

DRUGS (9)
  1. GLUCOPHAGE [Concomitant]
  2. PROZAC [Concomitant]
  3. WINE [Suspect]
  4. ACETAMINOPHEN [Suspect]
  5. UNKNOWN [Concomitant]
  6. TYLENOL PM [Suspect]
  7. SYNTHROID [Concomitant]
  8. ALLI [Suspect]
     Indication: WEIGHT LOSS DIET
     Route: 048
  9. BLOOD PRESSURE MEDICATION [Concomitant]

REACTIONS (1)
  - HEPATIC ENZYME INCREASED [None]
